FAERS Safety Report 25361608 (Version 2)
Quarter: 2025Q2

REPORT INFORMATION
  Report Type: Spontaneous
  Country: US (occurrence: US)
  Receive Date: 20250527
  Receipt Date: 20250609
  Transmission Date: 20250716
  Serious: Yes (Hospitalization, Other)
  Sender: SANOFI AVENTIS
  Company Number: US-SA-2025SA149638

PATIENT
  Age: 57 Year
  Sex: Male
  Weight: 73.64 kg

DRUGS (23)
  1. FABRAZYME [Suspect]
     Active Substance: AGALSIDASE BETA
     Indication: Fabry^s disease
     Dosage: 80 MG, QOW
     Route: 042
     Dates: start: 20110926
  2. EPINEPHRINE [Concomitant]
     Active Substance: EPINEPHRINE
  3. SODIUM CHLORIDE [Concomitant]
     Active Substance: SODIUM CHLORIDE
  4. STERILE WATER [Concomitant]
     Active Substance: WATER
  5. AMOXICILLIN [Concomitant]
     Active Substance: AMOXICILLIN
  6. OXYCODONE HYDROCHLORIDE [Concomitant]
     Active Substance: OXYCODONE HYDROCHLORIDE
  7. PREDNISONE [Concomitant]
     Active Substance: PREDNISONE
  8. PROLIA [Concomitant]
     Active Substance: DENOSUMAB
  9. HEPARIN [Concomitant]
     Active Substance: HEPARIN SODIUM
  10. SODIUM CHLORIDE [Concomitant]
     Active Substance: SODIUM CHLORIDE
  11. MYCOPHENOLIC ACID [Concomitant]
     Active Substance: MYCOPHENOLIC ACID
  12. GABAPENTIN [Concomitant]
     Active Substance: GABAPENTIN
  13. ALBUTEROL SULFATE [Concomitant]
     Active Substance: ALBUTEROL SULFATE
  14. ELIQUIS [Concomitant]
     Active Substance: APIXABAN
  15. LIDOCAINE [Concomitant]
     Active Substance: LIDOCAINE
  16. CRESTOR [Concomitant]
     Active Substance: ROSUVASTATIN CALCIUM
  17. FAMOTIDINE [Concomitant]
     Active Substance: FAMOTIDINE
  18. METOPROLOL TARTRATE [Concomitant]
     Active Substance: METOPROLOL TARTRATE
  19. LORATADINE D [Concomitant]
     Active Substance: LORATADINE\PSEUDOEPHEDRINE SULFATE
  20. PROGRAF [Concomitant]
     Active Substance: TACROLIMUS
  21. DIPHENHYDRAMINE HYDROCHLORIDE [Concomitant]
     Active Substance: DIPHENHYDRAMINE HYDROCHLORIDE
  22. TYLENOL EXTRA STRENGTH [Concomitant]
     Active Substance: ACETAMINOPHEN
  23. VITAMIN D3 [Concomitant]
     Active Substance: CHOLECALCIFEROL

REACTIONS (4)
  - Streptococcal infection [Unknown]
  - Spinal cord infection [Unknown]
  - Pain [Unknown]
  - Tenderness [Unknown]

NARRATIVE: CASE EVENT DATE: 20250101
